FAERS Safety Report 17910828 (Version 1)
Quarter: 2020Q2

REPORT INFORMATION
  Report Type: Spontaneous
  Country: IT (occurrence: IT)
  Receive Date: 20200618
  Receipt Date: 20200618
  Transmission Date: 20200714
  Serious: Yes (Death, Other)
  Sender: FDA-Public Use
  Company Number: IT-AUROBINDO-AUR-APL-2020-029422

PATIENT
  Age: 82 Year
  Sex: Male

DRUGS (2)
  1. PARACETAMOL [Suspect]
     Active Substance: ACETAMINOPHEN
     Indication: HEADACHE
     Dosage: 1 GRAM
     Route: 048
     Dates: start: 20200412, end: 20200412
  2. COUMADIN [Suspect]
     Active Substance: WARFARIN SODIUM
     Indication: ATRIAL FIBRILLATION
     Dosage: 1 DOSAGE FORM,AS NECESSARY
     Route: 048

REACTIONS (3)
  - Cerebral haemorrhage [Fatal]
  - Drug interaction [Fatal]
  - Headache [Fatal]

NARRATIVE: CASE EVENT DATE: 20200412
